FAERS Safety Report 7631629-5 (Version None)
Quarter: 2011Q3

REPORT INFORMATION
  Report Type: 
  Country: None (occurrence: None)
  Receive Date: 20110725
  Receipt Date: 20110301
  Transmission Date: 20111222
  Serious: Yes (Other)
  Sender: FDA-Public Use
  Company Number: US-BRISTOL-MYERS SQUIBB COMPANY-15514573

PATIENT
  Sex: Female

DRUGS (2)
  1. COUMADIN [Suspect]
  2. HEPARIN SODIUM [Suspect]

REACTIONS (3)
  - WHITE CLOT SYNDROME [None]
  - INTERNATIONAL NORMALISED RATIO DECREASED [None]
  - HYPOTENSION [None]
